FAERS Safety Report 13051955 (Version 1)
Quarter: 2016Q4

REPORT INFORMATION
  Report Type: Report from Study
  Country: US (occurrence: US)
  Receive Date: 20161221
  Receipt Date: 20161221
  Transmission Date: 20170207
  Serious: Yes (Hospitalization, Other)
  Sender: FDA-Public Use
  Company Number: US-009507513-1612USA009437

PATIENT
  Age: 52 Year
  Sex: Male
  Weight: 70.3 kg

DRUGS (12)
  1. PEMBROLIZUMAB. [Suspect]
     Active Substance: PEMBROLIZUMAB
     Indication: METASTATIC MALIGNANT MELANOMA
     Dosage: UNK
     Dates: start: 20161108
  2. HYDROCORTISONE. [Concomitant]
     Active Substance: HYDROCORTISONE
     Dosage: UNK
     Dates: start: 20160824
  3. IPILIMUMAB [Suspect]
     Active Substance: IPILIMUMAB
     Indication: METASTATIC MALIGNANT MELANOMA
     Dosage: UNK
     Dates: start: 20161108
  4. MUPIROCIN. [Concomitant]
     Active Substance: MUPIROCIN
     Dosage: UNK
     Dates: start: 20160331
  5. CODEINE (+) GUAIFENESIN [Concomitant]
     Dosage: UNK
     Dates: start: 20161130
  6. IBUPROFEN. [Concomitant]
     Active Substance: IBUPROFEN
  7. VITAMINS (UNSPECIFIED) [Concomitant]
     Active Substance: VITAMINS
  8. TRIAMCIN [Concomitant]
     Dosage: UNK
     Dates: start: 20161011
  9. LORAZEPAM. [Concomitant]
     Active Substance: LORAZEPAM
     Dosage: UNK
     Dates: start: 20160621
  10. KETOCONAZOLE. [Concomitant]
     Active Substance: KETOCONAZOLE
     Dosage: UNK
     Dates: start: 20161011
  11. LEVOTHYROXINE SODIUM. [Concomitant]
     Active Substance: LEVOTHYROXINE SODIUM
     Dosage: UNK
     Dates: start: 20161206
  12. VITAMIN D [Concomitant]
     Active Substance: CHOLECALCIFEROL

REACTIONS (6)
  - Pneumonia [Unknown]
  - Pneumonitis [Unknown]
  - Pulmonary infarction [Unknown]
  - Obstructive airways disorder [Unknown]
  - Malignant neoplasm progression [Unknown]
  - Atelectasis [Unknown]

NARRATIVE: CASE EVENT DATE: 2016
